FAERS Safety Report 24392084 (Version 1)
Quarter: 2024Q4

REPORT INFORMATION
  Report Type: Spontaneous
  Country: US (occurrence: None)
  Receive Date: 20241002
  Receipt Date: 20241002
  Transmission Date: 20250114
  Serious: Yes (Hospitalization)
  Sender: Public
  Company Number: None

PATIENT
  Age: 69 Year
  Sex: Male
  Weight: 92 kg

DRUGS (7)
  1. TRAZODONE HCL [Suspect]
     Active Substance: TRAZODONE HYDROCHLORIDE
     Indication: Sleep disorder
     Dosage: FREQUENCY : AT BEDTIME;?
     Route: 048
     Dates: end: 20240205
  2. AMITRIPTYLINE [Suspect]
     Active Substance: AMITRIPTYLINE
  3. DULOXETINE [Suspect]
     Active Substance: DULOXETINE
  4. MIRTAZAPINE [Suspect]
     Active Substance: MIRTAZAPINE
  5. QUETIAPINE [Suspect]
     Active Substance: QUETIAPINE
  6. TRAMADOL [Suspect]
     Active Substance: TRAMADOL
  7. HYDROCODONE BITARTRATE AND ACETAMINOPHEN [Suspect]
     Active Substance: ACETAMINOPHEN\HYDROCODONE BITARTRATE

REACTIONS (2)
  - Sedation [None]
  - Mental status changes [None]

NARRATIVE: CASE EVENT DATE: 20240205
